FAERS Safety Report 6368460-7 (Version None)
Quarter: 2009Q3

REPORT INFORMATION
  Report Type: 
  Country: None (occurrence: None)
  Receive Date: 20090917
  Receipt Date: 20090917
  Transmission Date: 20100115
  Serious: Yes (Other)
  Sender: FDA-Public Use
  Company Number: None

PATIENT
  Sex: Male
  Weight: 78.4723 kg

DRUGS (1)
  1. LOVENOX [Suspect]
     Indication: ANTICOAGULANT THERAPY
     Dosage: 80 MG EVERY 12 HOURS SQ
     Dates: start: 20090707, end: 20090709

REACTIONS (1)
  - HAEMATOMA [None]
